FAERS Safety Report 24545967 (Version 2)
Quarter: 2024Q4

REPORT INFORMATION
  Report Type: Spontaneous
  Country: DK (occurrence: DK)
  Receive Date: 20241024
  Receipt Date: 20241110
  Transmission Date: 20250115
  Serious: Yes (Other)
  Sender: AMGEN
  Company Number: DK-AMGEN-DNKSP2024207385

PATIENT

DRUGS (1)
  1. PROLIA [Suspect]
     Active Substance: DENOSUMAB
     Indication: Exposure during pregnancy
     Dosage: UNK
     Route: 050

REACTIONS (3)
  - Abortion spontaneous [Unknown]
  - Exposure via partner [Unknown]
  - Maternal exposure during pregnancy [Unknown]
